FAERS Safety Report 4616641-2 (Version None)
Quarter: 2005Q1

REPORT INFORMATION
  Report Type: 
  Country: None (occurrence: None)
  Receive Date: 20050321
  Receipt Date: 20020104
  Transmission Date: 20050727
  Serious: No
  Sender: FDA-Public Use
  Company Number: 3207

PATIENT
  Age: 3 Month
  Sex: Female

DRUGS (2)
  1. MIDAZOLAM [Suspect]
     Indication: SEDATION
     Dosage: 0.15 MG/KG IV
     Route: 042
  2. PHENOBARBITAL [Concomitant]

REACTIONS (5)
  - CONVULSION NEONATAL [None]
  - HYPERREFLEXIA [None]
  - HYPERTONIA NEONATAL [None]
  - MICROCEPHALY [None]
  - NEONATAL DISORDER [None]
